FAERS Safety Report 15191646 (Version 1)
Quarter: 2018Q3

REPORT INFORMATION
  Report Type: Spontaneous
  Country: ES (occurrence: ES)
  Receive Date: 20180724
  Receipt Date: 20180724
  Transmission Date: 20181010
  Serious: Yes (Life-Threatening)
  Sender: FDA-Public Use
  Company Number: ES-MYLANLABS-2018M1053782

PATIENT
  Age: 81 Year
  Sex: Female

DRUGS (4)
  1. LACOSAMIDA [Interacting]
     Active Substance: LACOSAMIDE
     Indication: STATUS EPILEPTICUS
     Dosage: 200 MG, QD
     Route: 040
     Dates: start: 20180319, end: 20180319
  2. FENTANYL. [Suspect]
     Active Substance: FENTANYL
     Indication: SEDATION
     Dosage: UNK
     Route: 041
     Dates: start: 20180319, end: 20180321
  3. LEVETIRACETAM. [Concomitant]
     Active Substance: LEVETIRACETAM
     Indication: SEDATION
     Dosage: 1500 MG, 12 HR
     Route: 042
     Dates: start: 20180319
  4. MIDAZOLAM [Interacting]
     Active Substance: MIDAZOLAM HYDROCHLORIDE
     Indication: SEDATION
     Dosage: 70 MG, QD
     Route: 042
     Dates: start: 20180319, end: 20180320

REACTIONS (2)
  - Drug interaction [Unknown]
  - Bradycardia [Recovered/Resolved]

NARRATIVE: CASE EVENT DATE: 20180319
